FAERS Safety Report 9294692 (Version 1)
Quarter: 2013Q2

REPORT INFORMATION
  Report Type: Spontaneous
  Country: US (occurrence: None)
  Receive Date: 20130516
  Receipt Date: 20130516
  Transmission Date: 20140414
  Serious: Yes (Other)
  Sender: FDA-Public Use
  Company Number: None

PATIENT
  Age: 66 Year
  Sex: Male

DRUGS (1)
  1. AVELOX [Suspect]
     Indication: PNEUMONIA
     Route: 048
     Dates: start: 20130408, end: 20130411

REACTIONS (5)
  - Musculoskeletal pain [None]
  - Hypoaesthesia [None]
  - Muscular weakness [None]
  - Movement disorder [None]
  - Muscle disorder [None]
